FAERS Safety Report 8669114 (Version 3)
Quarter: 2013Q1

REPORT INFORMATION
  Report Type: Spontaneous
  Country: US (occurrence: US)
  Receive Date: 20120717
  Receipt Date: 20130211
  Transmission Date: 20140127
  Serious: No
  Sender: FDA-Public Use
  Company Number: US-009507513-1207USA001261

PATIENT
  Age: 54 None
  Sex: Male
  Weight: 105.21 kg

DRUGS (4)
  1. PEGINTRON [Suspect]
     Indication: HEPATITIS C
     Dosage: 150 MICROGRAM, QW
     Route: 058
     Dates: start: 20120704
  2. PEGINTRON [Suspect]
     Dosage: 150 MICROGRAM, QW
     Route: 058
     Dates: start: 20120621
  3. RIBASPHERE [Suspect]
     Dosage: 600 MG, BID
  4. TELAPREVIR [Suspect]
     Dosage: 750 MG, TID
     Dates: start: 201210

REACTIONS (18)
  - Haemorrhoids [Unknown]
  - Headache [Unknown]
  - Fatigue [Not Recovered/Not Resolved]
  - Gastric disorder [Unknown]
  - Injection site reaction [Unknown]
  - Dyspnoea [Unknown]
  - Insomnia [Unknown]
  - Injection site pain [Not Recovered/Not Resolved]
  - Injection site pruritus [Not Recovered/Not Resolved]
  - Injection site erythema [Not Recovered/Not Resolved]
  - Anal pruritus [Recovering/Resolving]
  - Rash [Recovering/Resolving]
  - Infected skin ulcer [Recovering/Resolving]
  - Weight increased [Unknown]
  - Somatisation disorder [Not Recovered/Not Resolved]
  - Hepatitis C [Unknown]
  - Injection site mass [Unknown]
  - Skin ulcer [Unknown]
